FAERS Safety Report 4390865-4 (Version None)
Quarter: 2004Q3

REPORT INFORMATION
  Report Type: 
  Country: None (occurrence: None)
  Receive Date: 20040702
  Receipt Date: 20040702
  Transmission Date: 20050211
  Serious: Yes (Life-Threatening, Hospitalization)
  Sender: FDA-Public Use
  Company Number: None

PATIENT
  Age: 36 Year
  Sex: Female
  Weight: 90.7194 kg

DRUGS (3)
  1. PAXIL [Suspect]
     Indication: ANXIETY
     Dosage: 30 MG DAY ORAL
     Route: 048
     Dates: start: 20020201, end: 20040615
  2. PAXIL [Suspect]
     Indication: DEPRESSION
     Dosage: 30 MG DAY ORAL
     Route: 048
     Dates: start: 20020201, end: 20040615
  3. SEROQUEL [Concomitant]

REACTIONS (9)
  - ABNORMAL DREAMS [None]
  - AGITATION [None]
  - ANXIETY [None]
  - DIZZINESS [None]
  - IRRITABILITY [None]
  - NAUSEA [None]
  - PARAESTHESIA [None]
  - SUICIDE ATTEMPT [None]
  - VISION BLURRED [None]
